FAERS Safety Report 8843209 (Version 4)
Quarter: 2015Q1

REPORT INFORMATION
  Report Type: Spontaneous
  Country: US (occurrence: US)
  Receive Date: 20121016
  Receipt Date: 20150126
  Transmission Date: 20150721
  Serious: Yes (Death, Life-Threatening, Hospitalization, Other)
  Sender: FDA-Public Use
  Company Number: US-009507513-1210USA005877

PATIENT
  Sex: Male
  Weight: 99.77 kg

DRUGS (6)
  1. JANUVIA [Suspect]
     Active Substance: SITAGLIPTIN PHOSPHATE
     Indication: TYPE 2 DIABETES MELLITUS
     Dosage: 100 MG, QD
     Route: 048
     Dates: start: 20090414, end: 20101012
  2. JANUVIA [Suspect]
     Active Substance: SITAGLIPTIN PHOSPHATE
     Dosage: UNK
     Route: 048
     Dates: start: 20080711
  3. AVANDAMET [Concomitant]
     Active Substance: METFORMIN HYDROCHLORIDE\ROSIGLITAZONE MALEATE
     Indication: DIABETES MELLITUS
  4. SYNTHROID [Concomitant]
     Active Substance: LEVOTHYROXINE SODIUM
     Indication: BASEDOW^S DISEASE
  5. BYETTA [Suspect]
     Active Substance: EXENATIDE
     Indication: TYPE 2 DIABETES MELLITUS
     Dosage: 5 MICROGRAM, QD
     Dates: start: 20070116, end: 20080807
  6. SYNTHROID [Concomitant]
     Active Substance: LEVOTHYROXINE SODIUM
     Indication: HYPOTHYROIDISM
     Dosage: 75 MEQ, QD

REACTIONS (28)
  - Pancreatic carcinoma [Fatal]
  - Gastrointestinal motility disorder [Unknown]
  - Deep vein thrombosis [Unknown]
  - Orthostatic hypotension [Unknown]
  - Asthenia [Unknown]
  - Metastases to liver [Fatal]
  - Gastric ulcer surgery [Unknown]
  - Abnormal loss of weight [Unknown]
  - Insomnia [Unknown]
  - Abdominal pain [Not Recovered/Not Resolved]
  - Dizziness [Unknown]
  - Gastritis [Unknown]
  - Hyperglycaemia [Unknown]
  - Eating disorder [Unknown]
  - Myocardial infarction [Unknown]
  - Lacrimation increased [Unknown]
  - Blood bilirubin increased [Unknown]
  - Pulmonary embolism [Unknown]
  - Nerve block [Unknown]
  - Presyncope [Unknown]
  - Pancreatic stent placement [Unknown]
  - Headache [Unknown]
  - Hypertension [Unknown]
  - Vertebral lesion [Unknown]
  - Radiotherapy [Unknown]
  - Dehydration [Recovered/Resolved]
  - Cholecystectomy [Unknown]
  - Pancreatitis acute [Recovered/Resolved]

NARRATIVE: CASE EVENT DATE: 20080714
